FAERS Safety Report 6817671-2 (Version None)
Quarter: 2010Q3

REPORT INFORMATION
  Report Type: 
  Country: None (occurrence: None)
  Receive Date: 20100706
  Receipt Date: 20100628
  Transmission Date: 20110219
  Serious: Yes (Hospitalization)
  Sender: FDA-Public Use
  Company Number: ES-PFIZER INC-2009164546

PATIENT
  Age: 64 Year
  Sex: Male
  Weight: 87 kg

DRUGS (6)
  1. PEGVISOMANT [Suspect]
     Indication: ACROMEGALY
     Dosage: 15 MG, 1X/DAY
     Route: 058
     Dates: start: 20081003
  2. METFORMIN HYDROCHLORIDE [Concomitant]
     Dosage: UNK
     Dates: start: 20080310
  3. AMLODIPINE OROTATE [Concomitant]
     Dosage: UNK
     Dates: start: 20080310
  4. ACETYLSALICYLIC ACID [Concomitant]
     Dosage: UNK
     Dates: start: 20080310
  5. EPROSARTAN [Concomitant]
     Dates: start: 20080310
  6. ATORVASTATIN CALCIUM [Concomitant]
     Dosage: UNK
     Dates: start: 20080310

REACTIONS (1)
  - LACUNAR INFARCTION [None]
